FAERS Safety Report 5380574-7 (Version None)
Quarter: 2007Q3

REPORT INFORMATION
  Report Type: 
  Country: None (occurrence: None)
  Receive Date: 20070703
  Receipt Date: 20070620
  Transmission Date: 20080115
  Serious: Yes (Hospitalization)
  Sender: FDA-Public Use
  Company Number: 157882ISR

PATIENT
  Age: 28 Year
  Sex: Female

DRUGS (1)
  1. SALBUTAMOL [Suspect]
     Indication: ASTHMA
     Dosage: 5 MG

REACTIONS (6)
  - ABDOMINAL PAIN [None]
  - ABDOMINAL RIGIDITY [None]
  - BLOOD PH INCREASED [None]
  - CARBON DIOXIDE INCREASED [None]
  - DRUG LEVEL BELOW THERAPEUTIC [None]
  - HYPERLACTACIDAEMIA [None]
